FAERS Safety Report 4629881-3 (Version None)
Quarter: 2005Q2

REPORT INFORMATION
  Report Type: 
  Country: None (occurrence: None)
  Receive Date: 20050406
  Receipt Date: 20050323
  Transmission Date: 20051028
  Serious: Yes (Other)
  Sender: FDA-Public Use
  Company Number: DE_050315542

PATIENT
  Age: 77 Year
  Sex: Female

DRUGS (5)
  1. CYMBALTA [Suspect]
     Dosage: 60 MG DAY
     Dates: start: 20050316, end: 20050301
  2. OMEPRAZOL (OMEPRAZOLE RATIOPHARM) [Concomitant]
  3. ENAXEXAL COMP. [Concomitant]
  4. SIMVASTATIN RATIOPHARM (SIMVASTATIN RATIOPHARM) [Concomitant]
  5. HERBAL EXTRACTS NOS [Concomitant]

REACTIONS (3)
  - FEELING ABNORMAL [None]
  - NAUSEA [None]
  - VISUAL DISTURBANCE [None]
